FAERS Safety Report 6395249-5 (Version None)
Quarter: 2009Q4

REPORT INFORMATION
  Report Type: 
  Country: None (occurrence: None)
  Receive Date: 20091009
  Receipt Date: 20091002
  Transmission Date: 20100525
  Serious: Yes (Other)
  Sender: FDA-Public Use
  Company Number: JP-JNJFOC-20091002010

PATIENT
  Age: 28 Year
  Sex: Female

DRUGS (2)
  1. MICONAZOLE [Suspect]
     Route: 067
  2. MICONAZOLE [Suspect]
     Indication: DRUG USE FOR UNKNOWN INDICATION
     Route: 067

REACTIONS (1)
  - STEVENS-JOHNSON SYNDROME [None]
